FAERS Safety Report 14145516 (Version 5)
Quarter: 2019Q3

REPORT INFORMATION
  Report Type: Spontaneous
  Country: FR (occurrence: FR)
  Receive Date: 20171031
  Receipt Date: 20190819
  Transmission Date: 20191004
  Serious: Yes (Hospitalization, Other)
  Sender: FDA-Public Use
  Company Number: FR-PFIZER INC-2017467430

PATIENT
  Age: 83 Year
  Sex: Male
  Weight: 65 kg

DRUGS (8)
  1. ESOMEPRAZOLE MAGNESIUM. [Suspect]
     Active Substance: ESOMEPRAZOLE MAGNESIUM
     Indication: ABDOMINAL PAIN UPPER
     Dosage: 40 MG, 1X/DAY
     Route: 048
  2. ROSUVASTATIN. [Suspect]
     Active Substance: ROSUVASTATIN
     Indication: MYOCARDIAL INFARCTION
     Dosage: 10 MG, 1X/DAY
     Route: 048
  3. CORDARONE [Suspect]
     Active Substance: AMIODARONE HYDROCHLORIDE
     Indication: ARRHYTHMIA
     Dosage: UNK
     Route: 048
     Dates: end: 2012
  4. CORDARONE [Suspect]
     Active Substance: AMIODARONE HYDROCHLORIDE
     Indication: ATRIAL FIBRILLATION
  5. KARDEGIC [Suspect]
     Active Substance: ASPIRIN DL-LYSINE
     Indication: INFARCTION
     Dosage: 75 MG, 1X/DAY
     Route: 048
  6. NEBIVOLOL. [Suspect]
     Active Substance: NEBIVOLOL
     Indication: MYOCARDIAL INFARCTION
     Dosage: 2.5 MG, 1X/DAY
     Route: 048
  7. PREVISCAN (FLUINDIONE) [Suspect]
     Active Substance: FLUINDIONE
     Indication: ATRIAL FIBRILLATION
     Dosage: 20 MG, DIVISIBLE TABLET
     Route: 048
  8. PENTOXIFYLLINE. [Suspect]
     Active Substance: PENTOXIFYLLINE
     Indication: ATRIAL FIBRILLATION
     Dosage: 20 MG, 1X/DAY
     Route: 048

REACTIONS (3)
  - Embolic cerebral infarction [Unknown]
  - Pulmonary fibrosis [Not Recovered/Not Resolved]
  - Interstitial lung disease [Not Recovered/Not Resolved]

NARRATIVE: CASE EVENT DATE: 201710
